FAERS Safety Report 5072990-8 (Version None)
Quarter: 2006Q3

REPORT INFORMATION
  Report Type: 
  Country: None (occurrence: None)
  Receive Date: 20060802
  Receipt Date: 20060720
  Transmission Date: 20061208
  Serious: Yes (Death)
  Sender: FDA-Public Use
  Company Number: 2005160832

PATIENT
  Age: 31 Year
  Sex: Female
  Weight: 58 kg

DRUGS (10)
  1. SILDENAFIL CITRATE [Suspect]
     Indication: PULMONARY HYPERTENSION
     Dosage: 75 MG (25 MG, 3 IN 1 D) ORAL
     Route: 048
     Dates: start: 20021016, end: 20050423
  2. EPOPROSTENOL [Concomitant]
  3. WARFARIN SODIUM [Concomitant]
  4. DOPAMINE [Concomitant]
  5. DOBUTREX [Concomitant]
  6. LASIX [Concomitant]
  7. SOLDACTONE (POTASSIUM CANRENOATE, TROMETAMOL) [Concomitant]
  8. ALDACTONE [Concomitant]
  9. BERAPROST [Concomitant]
  10. DIART (AZOSEMIDE) [Concomitant]

REACTIONS (3)
  - DISEASE PROGRESSION [None]
  - PULMONARY HYPERTENSION [None]
  - RIGHT VENTRICULAR FAILURE [None]
